FAERS Safety Report 24221949 (Version 1)
Quarter: 2024Q3

REPORT INFORMATION
  Report Type: Report from Study
  Country: US (occurrence: None)
  Receive Date: 20240819
  Receipt Date: 20240819
  Transmission Date: 20241016
  Serious: Yes (Other)
  Sender: ASTRAZENECA
  Company Number: 2022A237321

PATIENT

DRUGS (1)
  1. CALQUENCE [Suspect]
     Active Substance: ACALABRUTINIB
     Indication: Chronic lymphocytic leukaemia
     Route: 048

REACTIONS (9)
  - Drug interaction [Unknown]
  - Cardiotoxicity [Unknown]
  - Tumour lysis syndrome [Unknown]
  - Haemorrhage [Unknown]
  - Thrombocytopenia [Unknown]
  - Hypertension [Unknown]
  - Haemorrhage [Unknown]
  - Neutropenia [Unknown]
  - Atrial fibrillation [Unknown]
